FAERS Safety Report 6647670-5 (Version None)
Quarter: 2010Q1

REPORT INFORMATION
  Report Type: 
  Country: None (occurrence: None)
  Receive Date: 20100323
  Receipt Date: 20100323
  Transmission Date: 20100710
  Serious: No
  Sender: FDA-Public Use
  Company Number: None

PATIENT
  Sex: Female
  Weight: 66.2252 kg

DRUGS (1)
  1. SIMVASTATIN [Suspect]
     Indication: BLOOD CHOLESTEROL
     Dosage: 1 - 10MG DAILY
     Dates: start: 20100303, end: 20100304

REACTIONS (4)
  - ABDOMINAL TENDERNESS [None]
  - FEELING ABNORMAL [None]
  - HAEMATEMESIS [None]
  - VOMITING [None]
